FAERS Safety Report 6775864-7 (Version None)
Quarter: 2010Q2

REPORT INFORMATION
  Report Type: 
  Country: None (occurrence: None)
  Receive Date: 20100617
  Receipt Date: 20100610
  Transmission Date: 20101027
  Serious: Yes (Death, Hospitalization, Other)
  Sender: FDA-Public Use
  Company Number: FR-ELI_LILLY_AND_COMPANY-FR201006002689

PATIENT
  Sex: Male

DRUGS (9)
  1. GEMZAR [Suspect]
     Indication: ADENOCARCINOMA PANCREAS
     Dosage: UNK, UNKNOWN
     Route: 042
     Dates: start: 20090616
  2. GEMZAR [Suspect]
     Dosage: UNK, UNKNOWN (REINTRODUCTION AFTER FIVE MONTHS)
     Route: 065
     Dates: start: 20100420, end: 20100420
  3. AERIUS [Concomitant]
     Dosage: UNK, UNKNOWN
     Route: 065
  4. REVIA [Concomitant]
     Dosage: UNK, UNKNOWN
     Route: 065
  5. ALPRAZOLAM [Concomitant]
     Dosage: UNK, UNKNOWN
     Route: 065
  6. SERTRALINE HCL [Concomitant]
     Dosage: UNK, UNKNOWN
     Route: 065
  7. MAG 2 [Concomitant]
     Dosage: UNK, UNKNOWN
     Route: 065
  8. OXYCONTIN [Concomitant]
     Dosage: UNK, UNKNOWN
     Route: 065
  9. OXYCODONE HCL [Concomitant]
     Dosage: UNK, UNKNOWN
     Route: 065

REACTIONS (3)
  - ADENOCARCINOMA PANCREAS [None]
  - MALIGNANT NEOPLASM PROGRESSION [None]
  - THROMBOTIC MICROANGIOPATHY [None]
